FAERS Safety Report 10221147 (Version 1)
Quarter: 2014Q2

REPORT INFORMATION
  Report Type: Report from Study
  Country: JP (occurrence: JP)
  Receive Date: 20140606
  Receipt Date: 20140606
  Transmission Date: 20141212
  Serious: Yes (Hospitalization)
  Sender: FDA-Public Use
  Company Number: JP-SA-2014SA072710

PATIENT
  Age: 25 Year
  Sex: Female
  Weight: 43.5 kg

DRUGS (9)
  1. THYMOGLOBULINE [Suspect]
     Indication: APLASTIC ANAEMIA
     Route: 042
     Dates: start: 20100831, end: 20100904
  2. NEORAL [Concomitant]
     Indication: APLASTIC ANAEMIA
     Dates: start: 20100831
  3. ZOVIRAX [Concomitant]
     Indication: ANTIVIRAL PROPHYLAXIS
     Dates: start: 20100831
  4. FLUCONAZOLE [Concomitant]
     Indication: ANTIFUNGAL PROPHYLAXIS
     Dates: start: 20100831
  5. BAKTAR [Concomitant]
     Indication: PROPHYLAXIS
     Dates: start: 20100831
  6. OMEPRAL [Concomitant]
     Indication: PROPHYLAXIS AGAINST GASTROINTESTINAL ULCER
     Dates: start: 20100831
  7. PRIMOBOLAN [Concomitant]
     Indication: APLASTIC ANAEMIA
     Dates: start: 20101207
  8. RED BLOOD CELLS [Concomitant]
     Indication: APLASTIC ANAEMIA
     Dates: start: 20100824, end: 20110214
  9. PLATELETS, HUMAN BLOOD [Concomitant]
     Indication: APLASTIC ANAEMIA
     Dates: start: 20100824, end: 20110311

REACTIONS (1)
  - Febrile neutropenia [Recovering/Resolving]
